FAERS Safety Report 15366537 (Version 4)
Quarter: 2019Q2

REPORT INFORMATION
  Report Type: Spontaneous
  Country: DE (occurrence: DE)
  Receive Date: 20180910
  Receipt Date: 20190604
  Transmission Date: 20190711
  Serious: Yes (Hospitalization, Other)
  Sender: FDA-Public Use
  Company Number: DE-MYLANLABS-2018M1065812

PATIENT
  Age: 57 Year
  Sex: Female

DRUGS (3)
  1. CANDESARTAN. [Suspect]
     Active Substance: CANDESARTAN
     Indication: HYPERTENSION
     Dosage: 5 MG, UNK
  2. CANDESARTAN. [Interacting]
     Active Substance: CANDESARTAN
     Dosage: 4 MG, QD
     Route: 065
  3. CONCOR COR [Interacting]
     Active Substance: BISOPROLOL FUMARATE
     Indication: TACHYCARDIA PAROXYSMAL
     Dosage: 5 MG, QD
     Route: 065

REACTIONS (10)
  - Fracture [Unknown]
  - Blood pressure abnormal [Recovering/Resolving]
  - Drug interaction [Unknown]
  - Off label use [Unknown]
  - Wrist fracture [Unknown]
  - Influenza [Unknown]
  - Malaise [Unknown]
  - Fatigue [Unknown]
  - Fall [Unknown]
  - Dizziness [Unknown]
